FAERS Safety Report 21378924 (Version 3)
Quarter: 2022Q4

REPORT INFORMATION
  Report Type: Report from Study
  Country: US (occurrence: US)
  Receive Date: 20220927
  Receipt Date: 20221027
  Transmission Date: 20230112
  Serious: No
  Sender: FDA-Public Use
  Company Number: US-ABBVIE-4129236

PATIENT
  Age: 48 Year
  Sex: Female

DRUGS (4)
  1. SKYRIZI [Suspect]
     Active Substance: RISANKIZUMAB-RZAA
     Indication: Psoriatic arthropathy
     Dosage: 150 MILLIGRAM
     Route: 058
     Dates: start: 202204, end: 202206
  2. PFIZER-BIONTECH COVID-19 VACCINE [Concomitant]
     Active Substance: TOZINAMERAN
     Indication: COVID-19 immunisation
     Dosage: 1ST DOSE 1 IN 1 ONCE
     Route: 030
     Dates: start: 20210814, end: 20210814
  3. PFIZER-BIONTECH COVID-19 VACCINE [Concomitant]
     Active Substance: TOZINAMERAN
     Indication: COVID-19 immunisation
     Dosage: 3RD DOSE 1 IN 1 ONCE
     Route: 030
     Dates: start: 20210904, end: 20210904
  4. PFIZER-BIONTECH COVID-19 VACCINE [Concomitant]
     Active Substance: TOZINAMERAN
     Indication: COVID-19 immunisation
     Dosage: 2ND DOSE 1 IN ONCE
     Route: 030
     Dates: start: 2021, end: 2021

REACTIONS (12)
  - Psoriatic arthropathy [Unknown]
  - Onychoclasis [Unknown]
  - Groin infection [Unknown]
  - Skin fissures [Unknown]
  - Omphalitis [Not Recovered/Not Resolved]
  - Pruritus [Not Recovered/Not Resolved]
  - Hypersomnia [Unknown]
  - Arthralgia [Not Recovered/Not Resolved]
  - Pain [Not Recovered/Not Resolved]
  - Onychomadesis [Not Recovered/Not Resolved]
  - Pain of skin [Not Recovered/Not Resolved]
  - Dysstasia [Not Recovered/Not Resolved]

NARRATIVE: CASE EVENT DATE: 20220601
